FAERS Safety Report 10952712 (Version 1)
Quarter: 2015Q1

REPORT INFORMATION
  Report Type: Spontaneous
  Country: US (occurrence: None)
  Receive Date: 20150226
  Receipt Date: 20150226
  Transmission Date: 20150721
  Serious: Yes (Hospitalization)
  Sender: FDA-Public Use
  Company Number: TAP2009Q00391

PATIENT
  Age: 2 Month
  Sex: Female
  Weight: 55.9 kg

DRUGS (5)
  1. PREVACID [Suspect]
     Active Substance: LANSOPRAZOLE
     Indication: GASTROOESOPHAGEAL REFLUX DISEASE
     Route: 048
     Dates: start: 20090401, end: 20090402
  2. POTASSIUM (POTASSIUM) [Concomitant]
     Active Substance: POTASSIUM
  3. VITAMIN B12 [Concomitant]
     Active Substance: CYANOCOBALAMIN
  4. TOPROL (METOPROLOL SUCCINATE) [Concomitant]
  5. PLAVIX [Concomitant]
     Active Substance: CLOPIDOGREL BISULFATE

REACTIONS (7)
  - Heart rate decreased [None]
  - Pruritus generalised [None]
  - Oral discomfort [None]
  - Urticaria [None]
  - Chest pain [None]
  - Rash generalised [None]
  - Dizziness [None]

NARRATIVE: CASE EVENT DATE: 20090401
